FAERS Safety Report 22931266 (Version 3)
Quarter: 2023Q4

REPORT INFORMATION
  Report Type: Spontaneous
  Country: US (occurrence: US)
  Receive Date: 20230911
  Receipt Date: 20231020
  Transmission Date: 20240109
  Serious: Yes (Other)
  Sender: FDA-Public Use
  Company Number: US-PFIZER INC-PV202300152739

PATIENT
  Age: 84 Year
  Sex: Male
  Weight: 64.41 kg

DRUGS (2)
  1. AZITHROMYCIN [Suspect]
     Active Substance: AZITHROMYCIN
     Indication: Bacterial infection
     Dosage: UNK
  2. AZITHROMYCIN [Suspect]
     Active Substance: AZITHROMYCIN
     Dosage: 500 MG, AVES ME 3 DAYS-1- 500MG CA- DAY STOPS ME, 1ST DAY, 2ND DAY,3RD DAY, 4TH DAY, 5TH DAY

REACTIONS (5)
  - Atrial fibrillation [Unknown]
  - Drug ineffective [Unknown]
  - Nervous system disorder [Unknown]
  - Bladder disorder [Unknown]
  - Nocturia [Unknown]
